FAERS Safety Report 11792327 (Version 1)
Quarter: 2015Q4

REPORT INFORMATION
  Report Type: Spontaneous
  Country: DE (occurrence: DE)
  Receive Date: 20151201
  Receipt Date: 20151201
  Transmission Date: 20160305
  Serious: Yes (Hospitalization, Other)
  Sender: FDA-Public Use
  Company Number: DE-ROCHE-1670163

PATIENT
  Age: 73 Year
  Sex: Male

DRUGS (2)
  1. CELLCEPT [Suspect]
     Active Substance: MYCOPHENOLATE MOFETIL\MYCOPHENOLATE MOFETIL HYDROCHLORIDE
     Indication: PRODUCT USED FOR UNKNOWN INDICATION
     Route: 065
  2. TACROLIMUS. [Concomitant]
     Active Substance: TACROLIMUS

REACTIONS (5)
  - Transplant rejection [Unknown]
  - Basal cell carcinoma [Unknown]
  - Bowen^s disease [Unknown]
  - Squamous cell carcinoma [Unknown]
  - Proteinuria [Unknown]

NARRATIVE: CASE EVENT DATE: 201411
